FAERS Safety Report 23069951 (Version 3)
Quarter: 2024Q1

REPORT INFORMATION
  Report Type: Spontaneous
  Country: IN (occurrence: IN)
  Receive Date: 20231016
  Receipt Date: 20240320
  Transmission Date: 20240410
  Serious: Yes (Other)
  Sender: FDA-Public Use
  Company Number: IN-PFIZER INC-PV202300167288

PATIENT
  Age: 72 Year
  Sex: Female
  Weight: 52.8 kg

DRUGS (2)
  1. DACOMITINIB [Suspect]
     Active Substance: DACOMITINIB
     Indication: Lung adenocarcinoma
     Dosage: 30 MG, 1X/DAY
     Route: 048
     Dates: start: 202301
  2. DOXYCYCLINE [Concomitant]
     Active Substance: DOXYCYCLINE
     Dosage: 100 MG, 1X/DAY

REACTIONS (19)
  - Carcinoembryonic antigen increased [Unknown]
  - Paronychia [Unknown]
  - Mucosal inflammation [Unknown]
  - Dyspepsia [Unknown]
  - Rash [Unknown]
  - Diarrhoea [Unknown]
  - Burning sensation [Unknown]
  - Nail bed bleeding [Unknown]
  - Body temperature decreased [Unknown]
  - Dry skin [Unknown]
  - Blood creatinine increased [Unknown]
  - Aspartate aminotransferase increased [Unknown]
  - Blood alkaline phosphatase increased [Unknown]
  - Platelet count decreased [Unknown]
  - Mean platelet volume increased [Unknown]
  - Monocyte percentage increased [Unknown]
  - Red blood cell count decreased [Unknown]
  - Haematocrit decreased [Unknown]
  - Red cell distribution width increased [Unknown]

NARRATIVE: CASE EVENT DATE: 20230301
